FAERS Safety Report 23971976 (Version 1)
Quarter: 2024Q2

REPORT INFORMATION
  Report Type: Spontaneous
  Country: US (occurrence: None)
  Receive Date: 20240612
  Receipt Date: 20240612
  Transmission Date: 20240716
  Serious: Yes (Disabling)
  Sender: FDA-Public Use
  Company Number: None

PATIENT
  Age: 85 Year
  Sex: Male
  Weight: 58.5 kg

DRUGS (1)
  1. TORSEMIDE [Suspect]
     Active Substance: TORSEMIDE

REACTIONS (3)
  - Vertigo [None]
  - Deafness [None]
  - Loss of personal independence in daily activities [None]

NARRATIVE: CASE EVENT DATE: 20140611
